FAERS Safety Report 6448822-X (Version None)
Quarter: 2009Q4

REPORT INFORMATION
  Report Type: 
  Country: None (occurrence: None)
  Receive Date: 20091120
  Receipt Date: 20091110
  Transmission Date: 20100525
  Serious: Yes (Life-Threatening, Hospitalization)
  Sender: FDA-Public Use
  Company Number: US-SANOFI-AVENTIS-D01200900592

PATIENT
  Age: 73 Year
  Sex: Female
  Weight: 57 kg

DRUGS (13)
  1. CLOPIDOGREL BISULFATE [Suspect]
     Indication: ACUTE CORONARY SYNDROME
     Dosage: DOSE TEXT: 600 MG LD D1 FOLLOWED BY 150 MG FROM D2 TO D7; 75 MG FROM D8 TO 30UNIT DOSE: 75 MG
     Route: 048
     Dates: start: 20090111
  2. CLOPIDOGREL BISULFATE [Suspect]
     Dosage: DOSE TEXT: 600 MG LD D1 FOLLOWED BY 150 MG FROM D2 TO D7; 75 MG FROM D8 TO 30UNIT DOSE: 75 MG
     Route: 048
     Dates: start: 20090115
  3. ASPIRIN [Concomitant]
     Indication: ACUTE CORONARY SYNDROME
     Dosage: DOSE TEXT: AT LEAST 300 MG D1; 75-100 MG FROM D2 TO D30
     Route: 048
     Dates: start: 20090111
  4. HEPARIN [Concomitant]
     Route: 065
     Dates: start: 20090110, end: 20090113
  5. LOVENOX [Concomitant]
     Route: 065
     Dates: start: 20090110, end: 20090113
  6. ZOCOR [Concomitant]
     Route: 065
  7. ZETIA [Concomitant]
     Route: 065
  8. NORVASC [Concomitant]
     Route: 065
  9. NEXIUM /UNK/ [Concomitant]
     Route: 065
  10. LOPRESSOR [Concomitant]
  11. HYDROCHLOROTHIAZIDE [Concomitant]
  12. PROPOFOL [Concomitant]
  13. IPRATROPIUM BROMIDE/SALBUTAMOL SULFATE [Concomitant]

REACTIONS (1)
  - VASCULAR PSEUDOANEURYSM RUPTURED [None]
